FAERS Safety Report 8325403-4 (Version None)
Quarter: 2012Q2

REPORT INFORMATION
  Report Type: 
  Country: None (occurrence: None)
  Receive Date: 20120501
  Receipt Date: 20100420
  Transmission Date: 20120825
  Serious: No
  Sender: FDA-Public Use
  Company Number: US-TEVA-2010002326

PATIENT
  Sex: Female
  Weight: 79.45 kg

DRUGS (6)
  1. MULTI-VITAMINS [Concomitant]
  2. HYDROXYCHLOROQUINE SULFATE [Concomitant]
  3. NUVIGIL [Suspect]
     Indication: SLEEP APNOEA SYNDROME
     Route: 048
     Dates: start: 20100320
  4. VITAMIN B-12 [Concomitant]
  5. PROVIGIL [Suspect]
     Indication: SLEEP APNOEA SYNDROME
     Route: 048
     Dates: start: 20100320
  6. THYROID TAB [Concomitant]

REACTIONS (5)
  - RASH [None]
  - DRY EYE [None]
  - PAIN IN EXTREMITY [None]
  - SINUS DISORDER [None]
  - SINUS HEADACHE [None]
